FAERS Safety Report 5361400-9 (Version None)
Quarter: 2007Q2

REPORT INFORMATION
  Report Type: 
  Country: None (occurrence: None)
  Receive Date: 20070530
  Receipt Date: 20070324
  Transmission Date: 20071010
  Serious: No
  Sender: FDA-Public Use
  Company Number: 2007PV032311

PATIENT
  Age: 70 Year
  Sex: Female

DRUGS (6)
  1. BYETTA [Suspect]
     Indication: DIABETES MELLITUS NON-INSULIN-DEPENDENT
     Dosage: SEE IMAGE
     Route: 057
     Dates: start: 20060101, end: 20060101
  2. BYETTA [Suspect]
     Indication: DIABETES MELLITUS NON-INSULIN-DEPENDENT
     Dosage: SEE IMAGE
     Route: 057
     Dates: start: 20060101
  3. HUMALOG [Concomitant]
  4. LANTUS [Concomitant]
  5. PFIZER [Concomitant]
  6. BLOOD PRESSURE MEDICATION [Concomitant]

REACTIONS (2)
  - DIZZINESS [None]
  - VERTIGO [None]
